FAERS Safety Report 10205213 (Version 8)
Quarter: 2017Q1

REPORT INFORMATION
  Report Type: Spontaneous
  Country: US (occurrence: US)
  Receive Date: 20140529
  Receipt Date: 20170221
  Transmission Date: 20170428
  Serious: Yes (Hospitalization, Disabling, Other)
  Sender: FDA-Public Use
  Company Number: US-PFIZER INC-2014146773

PATIENT
  Age: 24 Year
  Sex: Female
  Weight: 56.34 kg

DRUGS (25)
  1. IRON POLYSACCHARIDES [Concomitant]
     Dosage: 150 MG, DAILY
     Route: 048
  2. DIAZEPAM. [Concomitant]
     Active Substance: DIAZEPAM
     Dosage: 2 MG, AS NEEDED (2 MG EVERY 6 (SIX) HOURS AS NEEDED )
  3. ALPRAZOLAM. [Concomitant]
     Active Substance: ALPRAZOLAM
     Dosage: 0.5 MG, AS NEEDED
     Route: 048
  4. PRAVASTATIN. [Concomitant]
     Active Substance: PRAVASTATIN
     Dosage: 40 MG, DAILY
     Route: 048
  5. LYRICA [Suspect]
     Active Substance: PREGABALIN
     Dosage: 100 MG, 3X/DAY
     Route: 048
     Dates: start: 20160831
  6. ALPRAZOLAM. [Concomitant]
     Active Substance: ALPRAZOLAM
     Indication: SLEEP DISORDER
     Dosage: 0.5 MG (TAKE 0.5 MG NIGHTLY AS NEEDED/1/2 TABLET EVERY OTHER DAY)
     Route: 048
  7. BUTALBITAL, ACETAMINOPHEN, AND CAFFEINE [Concomitant]
     Active Substance: ACETAMINOPHEN\BUTALBITAL\CAFFEINE
     Dosage: [BUTALBITAL 50MG, CAFFEINE 40MG, PARACETAMOL 325MG], 4X/DAY
     Route: 048
  8. BIOTRIN [Concomitant]
     Dosage: 7500 UG, DAILY
     Route: 048
  9. AMANTADINE HCL [Concomitant]
     Active Substance: AMANTADINE HYDROCHLORIDE
     Dosage: 100 MG, 1X/DAY (EVERY MORNING)
     Route: 048
  10. LYRICA [Suspect]
     Active Substance: PREGABALIN
     Indication: FIBROMYALGIA
     Dosage: 150 MG, 2X/DAY
     Route: 048
  11. HYDROCODONE/ACETAMINOPHEN [Concomitant]
     Active Substance: ACETAMINOPHEN\HYDROCODONE
     Dosage: [HYDROCODONE BITARTRATE 5MG-PARACETAMOL 325MG], 2X/DAY
     Route: 048
  12. NORCO [Concomitant]
     Active Substance: ACETAMINOPHEN\HYDROCODONE BITARTRATE
     Dosage: [HYDROCODONE BITARTRATE 5 MG-PARACETAMOL 325 MG], UNK
     Dates: start: 20160801, end: 20160826
  13. ACYCLOVIR. [Concomitant]
     Active Substance: ACYCLOVIR
     Dosage: 400 MG, 3X/DAY
     Route: 048
  14. LEVALBUTEROL. [Concomitant]
     Active Substance: LEVALBUTEROL
     Indication: WHEEZING
     Dosage: INHALE 1-2 PUFFS INTO THE LUNGS EVERY 4 HOURS AS NEEDED
  15. ESCITALOPRAM OXALATE. [Concomitant]
     Active Substance: ESCITALOPRAM OXALATE
     Dosage: 1.5 MG, DAILY
     Route: 048
  16. CHOLECALCIFEROL [Concomitant]
     Active Substance: CHOLECALCIFEROL
     Dosage: 5000 IU, DAILY
     Route: 048
  17. EPINEPHRINE. [Concomitant]
     Active Substance: EPINEPHRINE
     Dosage: 0.3 MG, AS NEEDED (INJECT 0.3 MLS (0.3 MG TOTAL) INTO THE MUSCLE ONCE AS NEEDED)
     Route: 030
  18. ESCITALOPRAM OXALATE. [Concomitant]
     Active Substance: ESCITALOPRAM OXALATE
     Dosage: 15 MG, DAILY [TAKES 1.5 TABLETS]
     Route: 048
  19. EVENING PRIMROSE OIL [Concomitant]
     Active Substance: EVENING PRIMROSE OIL
     Dosage: UNK, DAILY
     Route: 048
  20. CARISOPRODOL. [Concomitant]
     Active Substance: CARISOPRODOL
     Indication: MUSCLE SPASMS
     Dosage: 350 MG, AS NEEDED (2 TIMES DAILY AS NEEDED)
     Route: 048
  21. MONTELUKAST [Concomitant]
     Active Substance: MONTELUKAST SODIUM
     Dosage: 10 MG, 1X/DAY (NIGHTLY)
     Route: 048
  22. ESOMEPRAZOLE [Concomitant]
     Active Substance: ESOMEPRAZOLE
     Dosage: 40 MG, DAILY
     Route: 048
  23. DIMETHYL FUMARATE [Concomitant]
     Active Substance: DIMETHYL FUMARATE
     Dosage: 120 MG, 2X/DAY
     Route: 048
  24. ALPRAZOLAM. [Concomitant]
     Active Substance: ALPRAZOLAM
     Dosage: 0.25 MG, ALTERNATE DAY [1/2 TABLET EVERY OTHER DAY]
  25. LYSINE [Concomitant]
     Active Substance: LYSINE
     Dosage: UNK, AS NEEDED
     Route: 048

REACTIONS (14)
  - Drug ineffective [Unknown]
  - Headache [Not Recovered/Not Resolved]
  - Memory impairment [Not Recovered/Not Resolved]
  - Cervicobrachial syndrome [Unknown]
  - Arthritis [Unknown]
  - Communication disorder [Not Recovered/Not Resolved]
  - Road traffic accident [Not Recovered/Not Resolved]
  - Central nervous system lesion [Unknown]
  - Nervous system disorder [Unknown]
  - Thought blocking [Not Recovered/Not Resolved]
  - Multiple sclerosis [Not Recovered/Not Resolved]
  - Migraine [Unknown]
  - Dysphemia [Unknown]
  - Fatigue [Unknown]

NARRATIVE: CASE EVENT DATE: 1995
